FAERS Safety Report 16473980 (Version 1)
Quarter: 2019Q2

REPORT INFORMATION
  Report Type: Spontaneous
  Country: MK (occurrence: MK)
  Receive Date: 20190625
  Receipt Date: 20190625
  Transmission Date: 20190711
  Serious: Yes (Death, Other)
  Sender: FDA-Public Use
  Company Number: MK-PANACEA BIOTEC LIMITED-000001

PATIENT
  Age: 7 Year
  Sex: Female

DRUGS (4)
  1. CICLOSPORIN (CYCLOSPORIN) [Suspect]
     Active Substance: CYCLOSPORINE
     Indication: ALLOGENIC STEM CELL TRANSPLANTATION
  2. MYCOPHENOLATE MOFETIL. [Suspect]
     Active Substance: MYCOPHENOLATE MOFETIL
     Indication: ALLOGENIC STEM CELL TRANSPLANTATION
  3. TACROLIMUS. [Suspect]
     Active Substance: TACROLIMUS
     Indication: ALLOGENIC STEM CELL TRANSPLANTATION
  4. ANTHYTYMOCYTE GLOBULIN [Concomitant]

REACTIONS (5)
  - Graft versus host disease in gastrointestinal tract [Fatal]
  - Posterior reversible encephalopathy syndrome [Unknown]
  - Product use in unapproved indication [Unknown]
  - Graft versus host disease in skin [Fatal]
  - Posterior reversible encephalopathy syndrome [Recovered/Resolved]
